FAERS Safety Report 7287797-0 (Version None)
Quarter: 2011Q1

REPORT INFORMATION
  Report Type: 
  Country: None (occurrence: None)
  Receive Date: 20110208
  Receipt Date: 20110208
  Transmission Date: 20110831
  Serious: Yes (Other)
  Sender: FDA-Public Use
  Company Number: None

PATIENT
  Age: 54 Year
  Sex: Male
  Weight: 102.0593 kg

DRUGS (1)
  1. WELLBUTRIN SR [Suspect]
     Indication: SMOKING CESSATION THERAPY
     Dosage: 150 MG 2X DAY PO
     Route: 048
     Dates: start: 20101011, end: 20110206

REACTIONS (5)
  - ANGER [None]
  - FAMILY STRESS [None]
  - LOSS OF EMPLOYMENT [None]
  - IRRITABILITY [None]
  - AGGRESSION [None]
